FAERS Safety Report 13023123 (Version 1)
Quarter: 2016Q4

REPORT INFORMATION
  Report Type: Spontaneous
  Country: US (occurrence: US)
  Receive Date: 20161213
  Receipt Date: 20161213
  Transmission Date: 20170207
  Serious: No
  Sender: FDA-Public Use
  Company Number: US-TEVA-666419USA

PATIENT
  Sex: Male

DRUGS (1)
  1. AZITHROMYCIN ANHYDROUS. [Suspect]
     Active Substance: AZITHROMYCIN ANHYDROUS
     Indication: COUGH
     Route: 065
     Dates: start: 20160516

REACTIONS (5)
  - Adverse event [Unknown]
  - Drug ineffective for unapproved indication [Unknown]
  - Dysphagia [Unknown]
  - Ear pain [Unknown]
  - Oropharyngeal pain [Unknown]
